FAERS Safety Report 7750207-0 (Version None)
Quarter: 2011Q3

REPORT INFORMATION
  Report Type: 
  Country: None (occurrence: None)
  Receive Date: 20110914
  Receipt Date: 20110914
  Transmission Date: 20111222
  Serious: Yes (Other)
  Sender: FDA-Public Use
  Company Number: PL-PFIZER INC-2011209495

PATIENT
  Age: 12 Year
  Sex: Female
  Weight: 54 kg

DRUGS (4)
  1. BISEPTOL [Concomitant]
  2. MIDAZOLAM [Concomitant]
  3. ATROPINE [Concomitant]
  4. KETAMINE HCL [Suspect]
     Indication: GENERAL ANAESTHESIA
     Dosage: 150 MG, UNK
     Route: 042
     Dates: start: 20110817, end: 20110817

REACTIONS (4)
  - FACE OEDEMA [None]
  - ERYTHEMA [None]
  - ERYTHEMA OF EYELID [None]
  - CHEILITIS [None]
